FAERS Safety Report 22226978 (Version 3)
Quarter: 2023Q2

REPORT INFORMATION
  Report Type: Spontaneous
  Country: US (occurrence: US)
  Receive Date: 20230419
  Receipt Date: 20230522
  Transmission Date: 20230721
  Serious: No
  Sender: FDA-Public Use
  Company Number: US-002147023-NVSC2023US089226

PATIENT
  Sex: Female

DRUGS (1)
  1. HYCAMTIN [Suspect]
     Active Substance: TOPOTECAN HYDROCHLORIDE
     Indication: Lung carcinoma cell type unspecified stage 0
     Dosage: 5 MG, QD (5 CAPSULES IN THE MORNING ON DAYS 1-5 EVERY 21 DAYS)
     Route: 048
     Dates: start: 202303

REACTIONS (2)
  - Fatigue [Unknown]
  - Diarrhoea [Not Recovered/Not Resolved]
